FAERS Safety Report 25420969 (Version 1)
Quarter: 2025Q2

REPORT INFORMATION
  Report Type: Spontaneous
  Country: HR (occurrence: HR)
  Receive Date: 20250611
  Receipt Date: 20250611
  Transmission Date: 20250717
  Serious: Yes (Other)
  Sender: CHEPLAPHARM
  Company Number: None

PATIENT
  Age: 17 Year
  Sex: Female
  Weight: 60 kg

DRUGS (3)
  1. CLONAZEPAM [Suspect]
     Active Substance: CLONAZEPAM
     Dosage: DAILY DOSE: 7 MILLIGRAM
     Route: 048
     Dates: start: 202504, end: 202504
  2. NORMABEL [Suspect]
     Active Substance: DIAZEPAM
     Dosage: DAILY DOSE: 30 MILLIGRAM
     Route: 048
     Dates: start: 202504, end: 202504
  3. COCAINE [Suspect]
     Active Substance: COCAINE

REACTIONS (2)
  - Drug abuse [Unknown]
  - Mydriasis [Unknown]

NARRATIVE: CASE EVENT DATE: 20250415
